FAERS Safety Report 26099635 (Version 1)
Quarter: 2025Q4

REPORT INFORMATION
  Report Type: Spontaneous
  Country: JP (occurrence: JP)
  Receive Date: 20251128
  Receipt Date: 20251128
  Transmission Date: 20260118
  Serious: Yes (Other)
  Sender: ANI
  Company Number: JP-ANIPHARMA-031221

PATIENT
  Age: 77 Year
  Sex: Male

DRUGS (1)
  1. BICALUTAMIDE [Suspect]
     Active Substance: BICALUTAMIDE
     Indication: Prostate cancer

REACTIONS (5)
  - Neoplasm malignant [Unknown]
  - Prostate cancer recurrent [Unknown]
  - Cardiac failure [Unknown]
  - Heart valve incompetence [Unknown]
  - Insomnia [Unknown]
